FAERS Safety Report 6551091-3 (Version None)
Quarter: 2010Q1

REPORT INFORMATION
  Report Type: 
  Country: None (occurrence: None)
  Receive Date: 20100125
  Receipt Date: 20100120
  Transmission Date: 20100710
  Serious: Yes (Death)
  Sender: FDA-Public Use
  Company Number: US-GILEAD-2010-0026461

PATIENT
  Sex: Male
  Weight: 76.8 kg

DRUGS (3)
  1. TRUVADA [Suspect]
     Indication: ACQUIRED IMMUNODEFICIENCY SYNDROME
     Dates: start: 20091204
  2. ISENTRESS [Concomitant]
     Indication: ACQUIRED IMMUNODEFICIENCY SYNDROME
     Dates: start: 20091204
  3. DAPSONE [Concomitant]
     Indication: ACQUIRED IMMUNODEFICIENCY SYNDROME
     Dates: start: 20091119

REACTIONS (1)
  - HEPATIC FAILURE [None]
